FAERS Safety Report 8320251-3 (Version None)
Quarter: 2012Q2

REPORT INFORMATION
  Report Type: 
  Country: None (occurrence: None)
  Receive Date: 20120430
  Receipt Date: 20120416
  Transmission Date: 20120825
  Serious: Yes (Hospitalization)
  Sender: FDA-Public Use
  Company Number: US-VERTEX PHARMACEUTICALS INC.-AE-2012-005322

PATIENT
  Sex: Male
  Weight: 56.79 kg

DRUGS (14)
  1. IVACAFTOR [Suspect]
     Indication: CYSTIC FIBROSIS
     Route: 048
     Dates: start: 20101129
  2. FLONASE [Concomitant]
     Indication: CHRONIC SINUSITIS
     Route: 045
  3. ALBUTEROL [Concomitant]
     Indication: CYSTIC FIBROSIS LUNG
  4. SOURCE ABDEK [Concomitant]
     Indication: MALABSORPTION
     Route: 048
  5. BACTRIM DS [Concomitant]
     Indication: CYSTIC FIBROSIS LUNG
     Route: 048
  6. PULMICORT [Concomitant]
     Indication: CYSTIC FIBROSIS LUNG
  7. PULMOZYME [Concomitant]
     Indication: CYSTIC FIBROSIS LUNG
  8. TAMIFLU [Concomitant]
     Indication: PROPHYLAXIS
     Route: 048
  9. ZITHROMAX [Concomitant]
     Indication: CYSTIC FIBROSIS LUNG
  10. ATROVENT [Concomitant]
     Indication: CYSTIC FIBROSIS LUNG
     Route: 045
  11. CREON [Concomitant]
     Indication: PANCREATIC INSUFFICIENCY
     Route: 048
  12. RANITIDINE [Concomitant]
     Indication: GASTROOESOPHAGEAL REFLUX DISEASE
     Route: 048
  13. MIRALAX/GLYCOLAX [Concomitant]
     Indication: CONSTIPATION
  14. TOBRAMYCIN [Concomitant]
     Indication: BACTERIAL DISEASE CARRIER

REACTIONS (1)
  - PNEUMONIA [None]
